FAERS Safety Report 10884105 (Version 3)
Quarter: 2015Q2

REPORT INFORMATION
  Report Type: Report from Study
  Country: DE (occurrence: DE)
  Receive Date: 20150304
  Receipt Date: 20150616
  Transmission Date: 20150821
  Serious: Yes (Hospitalization, Other)
  Sender: FDA-Public Use
  Company Number: DE-BIOGENIDEC-2015BI022813

PATIENT
  Age: 45 Year
  Sex: Female

DRUGS (9)
  1. TECFIDERA [Suspect]
     Active Substance: DIMETHYL FUMARATE
     Indication: MULTIPLE SCLEROSIS
     Route: 048
     Dates: end: 20150222
  2. TRAMAL [Concomitant]
     Active Substance: TRAMADOL
     Indication: PAIN
  3. TECFIDERA [Suspect]
     Active Substance: DIMETHYL FUMARATE
     Indication: MULTIPLE SCLEROSIS
     Route: 048
     Dates: start: 20140303
  4. TECFIDERA [Suspect]
     Active Substance: DIMETHYL FUMARATE
     Indication: MULTIPLE SCLEROSIS
     Route: 048
     Dates: start: 20140331
  5. TECFIDERA [Suspect]
     Active Substance: DIMETHYL FUMARATE
     Indication: MULTIPLE SCLEROSIS
     Route: 048
     Dates: end: 20150209
  6. GALACORDIN FORTE [Concomitant]
     Indication: NUTRITIONAL SUPPLEMENTATION
  7. ARCOXIA [Concomitant]
     Active Substance: ETORICOXIB
     Indication: PAIN
  8. VENLAFAXIN [Concomitant]
     Active Substance: VENLAFAXINE HYDROCHLORIDE
     Indication: DEPRESSION
  9. BISOPROLOL [Concomitant]
     Active Substance: BISOPROLOL
     Indication: HYPERTENSION

REACTIONS (7)
  - Soft tissue injury [Not Recovered/Not Resolved]
  - Osteosclerosis [Unknown]
  - Clavicle fracture [Not Recovered/Not Resolved]
  - Osteomyelitis chronic [Unknown]
  - Laryngeal haemorrhage [Recovered/Resolved]
  - Lymphocyte count increased [Unknown]
  - Osteonecrosis [Not Recovered/Not Resolved]

NARRATIVE: CASE EVENT DATE: 20150205
